FAERS Safety Report 15177938 (Version 6)
Quarter: 2019Q2

REPORT INFORMATION
  Report Type: Report from Study
  Country: None (occurrence: US)
  Receive Date: 20180720
  Receipt Date: 20190516
  Transmission Date: 20190711
  Serious: Yes (Other)
  Sender: FDA-Public Use
  Company Number: US-ABBVIE-18K-163-2425388-00

PATIENT
  Age: 81 Year
  Sex: Female
  Weight: 79.9 kg

DRUGS (7)
  1. HUMIRA [Suspect]
     Active Substance: ADALIMUMAB
     Indication: RHEUMATOID ARTHRITIS
     Route: 058
     Dates: start: 2016, end: 201812
  2. PRESERVISION [Concomitant]
     Active Substance: MINERALS\VITAMINS
     Indication: EYE DISORDER
  3. LOSARTAN. [Concomitant]
     Active Substance: LOSARTAN
     Indication: HYPERTENSION
  4. LEFLUNOMIDE. [Concomitant]
     Active Substance: LEFLUNOMIDE
     Indication: RHEUMATOID ARTHRITIS
  5. HUMIRA [Suspect]
     Active Substance: ADALIMUMAB
     Route: 058
     Dates: start: 201812
  6. PREDNISONE. [Concomitant]
     Active Substance: PREDNISONE
     Indication: RHEUMATOID ARTHRITIS
  7. VITAMIN D3 [Concomitant]
     Active Substance: CHOLECALCIFEROL
     Indication: VITAMIN SUPPLEMENTATION

REACTIONS (12)
  - Joint swelling [Recovering/Resolving]
  - Arthralgia [Not Recovered/Not Resolved]
  - Foot deformity [Recovering/Resolving]
  - Paraesthesia [Not Recovered/Not Resolved]
  - Arthralgia [Recovering/Resolving]
  - Swelling [Recovering/Resolving]
  - Pain in extremity [Recovering/Resolving]
  - Musculoskeletal pain [Recovering/Resolving]
  - Anaemia [Recovering/Resolving]
  - Acne [Not Recovered/Not Resolved]
  - Inflammation [Not Recovered/Not Resolved]
  - Arthritis [Not Recovered/Not Resolved]

NARRATIVE: CASE EVENT DATE: 201807
